FAERS Safety Report 13961705 (Version 1)
Quarter: 2017Q3

REPORT INFORMATION
  Report Type: Spontaneous
  Country: FI (occurrence: FI)
  Receive Date: 20170912
  Receipt Date: 20170912
  Transmission Date: 20171128
  Serious: Yes (Hospitalization)
  Sender: FDA-Public Use
  Company Number: FI-PURDUE PHARMA-GBR-2017-0048490

PATIENT

DRUGS (3)
  1. TARGINIQ ER [Suspect]
     Active Substance: NALOXONE HYDROCHLORIDE\OXYCODONE HYDROCHLORIDE
     Dosage: 5 MG, BID
     Route: 048
  2. TARGINIQ ER [Suspect]
     Active Substance: NALOXONE HYDROCHLORIDE\OXYCODONE HYDROCHLORIDE
     Indication: PAIN
     Dosage: UNK
     Route: 048
  3. OXYNORM [Suspect]
     Active Substance: OXYCODONE HYDROCHLORIDE
     Indication: PAIN
     Dosage: UNK, PRN
     Route: 048

REACTIONS (8)
  - Dysgraphia [Recovering/Resolving]
  - Asthenia [Recovering/Resolving]
  - Feeding disorder [Recovering/Resolving]
  - Dyspnoea [Unknown]
  - Depression [Unknown]
  - Aggression [Unknown]
  - Speech disorder [Recovering/Resolving]
  - Hallucination, visual [Unknown]
